FAERS Safety Report 6286616-9 (Version None)
Quarter: 2009Q3

REPORT INFORMATION
  Report Type: 
  Country: None (occurrence: None)
  Receive Date: 20090727
  Receipt Date: 20090727
  Transmission Date: 20100115
  Serious: Yes (Life-Threatening)
  Sender: FDA-Public Use
  Company Number: None

PATIENT
  Age: 83 Year
  Sex: Female
  Weight: 58.9676 kg

DRUGS (1)
  1. AMLODIPINE BESYLATE [Suspect]
     Indication: HYPERTENSION
     Dosage: 1 TWICE A DAY MOUTH
     Route: 048
     Dates: start: 20090712

REACTIONS (3)
  - CHOKING [None]
  - TABLET ISSUE [None]
  - THROAT TIGHTNESS [None]
